FAERS Safety Report 10017808 (Version 2)
Quarter: 2014Q2

REPORT INFORMATION
  Report Type: Spontaneous
  Country: JP (occurrence: JP)
  Receive Date: 20140318
  Receipt Date: 20140530
  Transmission Date: 20141212
  Serious: Yes (Hospitalization, Other)
  Sender: FDA-Public Use
  Company Number: JP-ASTELLAS-2014JP002286

PATIENT
  Age: 34 Year
  Sex: Female
  Weight: 39 kg

DRUGS (76)
  1. PROGRAF [Suspect]
     Indication: PROPHYLAXIS AGAINST GRAFT VERSUS HOST DISEASE
     Dosage: UNK, UNKNOWN FREQ.
     Route: 065
  2. PROGRAF [Suspect]
     Indication: PROPHYLAXIS AGAINST GRAFT VERSUS HOST DISEASE
     Dosage: 24-HOUR CONTINUOUS
     Route: 041
     Dates: start: 20130801, end: 20130821
  3. GASTER [Suspect]
     Indication: PRODUCT USED FOR UNKNOWN INDICATION
     Dosage: UNK, UNKNOWN FREQ.
     Route: 065
  4. ITRACONAZOLE [Suspect]
     Indication: PRODUCT USED FOR UNKNOWN INDICATION
     Dosage: UNK UNK, UNKNOWN FREQ.
     Route: 065
  5. COLCHICINE [Suspect]
     Indication: PRODUCT USED FOR UNKNOWN INDICATION
     Dosage: UNK UNK, UNKNOWN FREQ.
     Route: 065
  6. PENTASA [Suspect]
     Indication: PRODUCT USED FOR UNKNOWN INDICATION
     Dosage: UNK UNK, UNKNOWN FREQ.
     Route: 065
  7. FINIBAX [Suspect]
     Indication: PRODUCT USED FOR UNKNOWN INDICATION
     Dosage: UNK UNK, UNKNOWN FREQ.
     Route: 065
  8. VANCOMYCIN                         /00314402/ [Suspect]
     Indication: PRODUCT USED FOR UNKNOWN INDICATION
     Dosage: UNK UNK, UNKNOWN FREQ.
     Route: 065
  9. CELLCEPT [Concomitant]
     Indication: PROPHYLAXIS AGAINST GRAFT VERSUS HOST DISEASE
     Dosage: UNK, UNKNOWN FREQUENCY
     Route: 048
     Dates: start: 20130621
  10. CELLCEPT [Concomitant]
     Dosage: UNKNOWN DOSE
     Route: 048
     Dates: start: 20130801
  11. CELLCEPT [Concomitant]
     Dosage: AT 6, 14, 22 O?CLOCK
     Route: 048
  12. FLUDARA [Concomitant]
     Indication: PREMEDICATION
     Route: 065
     Dates: start: 201306, end: 201306
  13. FLUDARA [Concomitant]
     Route: 065
     Dates: start: 2013, end: 2013
  14. BUSULFAN [Concomitant]
     Indication: PREMEDICATION
     Route: 065
     Dates: start: 2013, end: 2013
  15. CICLOSPORIN [Concomitant]
     Indication: PROPHYLAXIS AGAINST GRAFT VERSUS HOST DISEASE
     Dosage: UNKNOWN
     Route: 065
     Dates: start: 20130621
  16. CICLOSPORIN [Concomitant]
     Dosage: UNKNOWN
     Route: 065
  17. ENDOXAN [Concomitant]
     Indication: PREMEDICATION
     Route: 065
     Dates: start: 201306, end: 201306
  18. ENDOXAN [Concomitant]
     Indication: IMMUNOSUPPRESSANT DRUG THERAPY
     Dosage: UNK, UNKNOWN FREQ.
     Route: 065
     Dates: start: 20130804
  19. URSO                               /00465701/ [Concomitant]
     Indication: PRODUCT USED FOR UNKNOWN INDICATION
     Dosage: AFTER EACH MEAL
     Route: 048
  20. CINAL [Concomitant]
     Indication: PRODUCT USED FOR UNKNOWN INDICATION
     Dosage: AFTER EACH MEAL
     Route: 048
  21. BIOFERMIN R [Concomitant]
     Indication: PRODUCT USED FOR UNKNOWN INDICATION
     Dosage: AFTER EACH MEAL
     Route: 048
  22. PLANOVAR [Concomitant]
     Indication: PRODUCT USED FOR UNKNOWN INDICATION
     Dosage: AFTER BREAKFAST
     Route: 048
     Dates: end: 20130822
  23. FRANDOL [Concomitant]
     Indication: PRODUCT USED FOR UNKNOWN INDICATION
     Dosage: APPLY ONCE IN THE EVENING
     Route: 062
     Dates: start: 20130817, end: 20130821
  24. XYLOCAINE                          /00033401/ [Concomitant]
     Indication: PRODUCT USED FOR UNKNOWN INDICATION
     Dosage: 6 BOTTLES, SEVERAL TIMES DAILY, AS PHYSICIAN INSTRUCTED, FOR TOPICAL USE
     Route: 065
     Dates: start: 20130815
  25. THROMBIN [Concomitant]
     Indication: PRODUCT USED FOR UNKNOWN INDICATION
     Dosage: 1 BOTTLE, SPRAY TO THE AFFECTED AREA
     Route: 065
  26. NERISONA [Concomitant]
     Indication: PRURITUS
     Dosage: 10 TUBES, 1-2 TIMES DAILY, ON ITCHY AREA
     Route: 061
  27. NERISONA [Concomitant]
     Indication: ECZEMA
     Dosage: 3 TUBES, APPLY TO THE AFFECTED AREA
     Route: 061
     Dates: start: 20130817
  28. NERISONA [Concomitant]
     Indication: PRODUCT USED FOR UNKNOWN INDICATION
     Dosage: 60 TUBES
     Route: 061
  29. HYALEIN [Concomitant]
     Indication: PRODUCT USED FOR UNKNOWN INDICATION
     Dosage: 2 BOTTLES, AS PHYSICIAN INSTRUCTED
     Route: 047
  30. HIRUDOID                           /00723701/ [Concomitant]
     Indication: PRODUCT USED FOR UNKNOWN INDICATION
     Dosage: 7 TUBES, 1-2 TIMES DAILY
     Route: 061
  31. BRONUCK [Concomitant]
     Indication: PRODUCT USED FOR UNKNOWN INDICATION
     Dosage: 1 BOTTLE, INSTILL IN BOTH EYES
     Route: 047
     Dates: start: 20130821
  32. LIDOMEX [Concomitant]
     Indication: PRURITUS
     Dosage: 10 G, ON ITCHY AREA
     Route: 061
  33. ACICLOVIN [Concomitant]
     Indication: PRODUCT USED FOR UNKNOWN INDICATION
     Dosage: UNK, UNKNOWN FREQ.
     Route: 065
     Dates: end: 20130813
  34. ACICLOVIN [Concomitant]
     Dosage: UNK, UNKNOWN FREQ.
     Route: 065
     Dates: start: 20130815, end: 20130815
  35. ACICLOVIN [Concomitant]
     Dosage: UNK, UNKNOWN FREQ.
     Route: 065
     Dates: start: 20130817, end: 20130817
  36. ACICLOVIN [Concomitant]
     Dosage: UNK, UNKNOWN FREQ.
     Route: 065
     Dates: start: 20130819, end: 20130819
  37. ACICLOVIN [Concomitant]
     Dosage: UNK, UNKNOWN FREQ.
     Route: 065
     Dates: start: 20130821, end: 20130821
  38. ACICLOVIN [Concomitant]
     Dosage: UNK, UNKNOWN FREQ.
     Route: 065
     Dates: start: 20130823, end: 20130823
  39. ACICLOVIN [Concomitant]
     Dosage: UNK, UNKNOWN FREQ.
     Route: 065
     Dates: start: 20130825, end: 20130825
  40. ATARAX-P                           /00058402/ [Concomitant]
     Indication: NAUSEA
     Dosage: 4/4, AS NEEDED
     Route: 065
     Dates: end: 20130816
  41. ATARAX-P                           /00058402/ [Concomitant]
     Dosage: UNK, AS NEEDED
     Route: 065
     Dates: start: 20130818
  42. ADONA                              /00056903/ [Concomitant]
     Indication: PRODUCT USED FOR UNKNOWN INDICATION
     Dosage: UNK, UNKNOWN FREQ.
     Route: 065
  43. AMBISOME [Concomitant]
     Indication: PRODUCT USED FOR UNKNOWN INDICATION
     Dosage: UNK, UNKNOWN FREQ.
     Route: 065
  44. ALBUMINAR [Concomitant]
     Indication: PRODUCT USED FOR UNKNOWN INDICATION
     Dosage: 1/1
     Route: 065
     Dates: end: 20130813
  45. OMEPRAL                            /00661201/ [Concomitant]
     Indication: PRODUCT USED FOR UNKNOWN INDICATION
     Dosage: UNK, UNKNOWN FREQ.
     Route: 065
     Dates: start: 20130814
  46. CANCIDAS [Concomitant]
     Indication: PRODUCT USED FOR UNKNOWN INDICATION
     Dosage: UNK, UNKNOWN FREQ.
     Route: 065
     Dates: start: 20130813, end: 20130821
  47. CUBICIN [Concomitant]
     Indication: PRODUCT USED FOR UNKNOWN INDICATION
     Dosage: UNK, UNKNOWN FREQ.
     Route: 065
     Dates: end: 20130813
  48. CUBICIN [Concomitant]
     Dosage: UNK, UNKNOWN FREQ.
     Route: 065
     Dates: start: 20130815, end: 20130815
  49. ZYVOX [Concomitant]
     Indication: PRODUCT USED FOR UNKNOWN INDICATION
     Dosage: UNK, UNKNOWN FREQ.
     Route: 065
     Dates: start: 20130817, end: 20130820
  50. SANDIMMUN [Concomitant]
     Indication: PRODUCT USED FOR UNKNOWN INDICATION
     Dosage: UNK, UNKNOWN FREQ.
     Route: 065
     Dates: start: 20130821
  51. SERENACE [Concomitant]
     Indication: INSOMNIA
     Dosage: UNK, UNKNOWN FREQ.
     Route: 065
     Dates: start: 20130813, end: 20130814
  52. SERENACE [Concomitant]
     Dosage: UNKNOWN DOSE, AS NEEDED
     Route: 065
     Dates: start: 20130818, end: 20130819
  53. SERENACE [Concomitant]
     Dosage: UNKNOWN DOSE, AS NEEDED
     Route: 065
     Dates: start: 20130826
  54. SOSEGON                            /00052101/ [Concomitant]
     Indication: PAIN
     Dosage: UNKNOWN DOSE, AS NEEDED
     Route: 065
     Dates: end: 20130812
  55. SOLU-MEDROL [Concomitant]
     Indication: PRODUCT USED FOR UNKNOWN INDICATION
     Dosage: 40MG 1/1
     Route: 065
  56. TIENAM [Concomitant]
     Indication: PRODUCT USED FOR UNKNOWN INDICATION
     Dosage: 1/1
     Route: 065
     Dates: start: 20130816
  57. NICARDIPINE HYDROCHLORIDE [Concomitant]
     Indication: PRODUCT USED FOR UNKNOWN INDICATION
     Dosage: 2MG/2ML 1/1
     Route: 065
     Dates: start: 20130817
  58. NEUTROGIN [Concomitant]
     Indication: PRODUCT USED FOR UNKNOWN INDICATION
     Dosage: UNK, UNKNOWN FREQ.
     Route: 065
     Dates: end: 20130816
  59. HANP [Concomitant]
     Indication: PRODUCT USED FOR UNKNOWN INDICATION
     Dosage: UNK, UNKNOWN FREQ.
     Route: 065
     Dates: start: 20130814, end: 20130817
  60. HUMULIN R [Concomitant]
     Indication: PRODUCT USED FOR UNKNOWN INDICATION
     Dosage: UNK, UNKNOWN FREQ.
     Route: 065
  61. VFEND [Concomitant]
     Indication: PRODUCT USED FOR UNKNOWN INDICATION
     Dosage: UNK, UNKNOWN FREQ.
     Route: 065
     Dates: end: 20130813
  62. VFEND [Concomitant]
     Dosage: 0.8/0.8
     Route: 065
     Dates: start: 20130822
  63. FENTANYL                           /00174602/ [Concomitant]
     Indication: PRODUCT USED FOR UNKNOWN INDICATION
     Dosage: UNK, UNKNOWN FREQ.
     Route: 065
     Dates: end: 20130823
  64. FENTANYL                           /00174602/ [Concomitant]
     Dosage: 4/4
     Route: 065
     Dates: start: 20130825, end: 20130825
  65. POLARAMINE [Concomitant]
     Indication: PREOPERATIVE CARE
     Dosage: UNK, UNKNOWN FREQ.
     Route: 065
     Dates: start: 20130815, end: 20130816
  66. VOLVIX [Concomitant]
     Indication: PRODUCT USED FOR UNKNOWN INDICATION
     Dosage: UNK, UNKNOWN FREQ.
     Route: 065
     Dates: end: 20130819
  67. MIRACLID [Concomitant]
     Indication: PRODUCT USED FOR UNKNOWN INDICATION
     Dosage: UNK, UNKNOWN FREQ.
     Route: 065
     Dates: start: 20130816
  68. MEROPEN                            /01250501/ [Concomitant]
     Indication: PRODUCT USED FOR UNKNOWN INDICATION
     Dosage: UNK, UNKNOWN FREQ.
     Route: 065
     Dates: end: 20130816
  69. LASIX                              /00032601/ [Concomitant]
     Indication: PRODUCT USED FOR UNKNOWN INDICATION
     Dosage: UNK, UNKNOWN FREQ.
     Route: 065
     Dates: end: 20130812
  70. LASIX                              /00032601/ [Concomitant]
     Dosage: UNK, UNKNOWN FREQ.
     Route: 065
     Dates: start: 20130814, end: 20130814
  71. RECOMODULIN [Concomitant]
     Indication: PRODUCT USED FOR UNKNOWN INDICATION
     Dosage: UNK, UNKNOWN FREQ.
     Route: 065
     Dates: start: 20130813, end: 20130816
  72. ALBUMIN [Concomitant]
     Indication: PRODUCT USED FOR UNKNOWN INDICATION
     Dosage: UNK, UNKNOWN FREQ.
     Route: 065
     Dates: start: 20130814, end: 20130814
  73. ALBUMIN [Concomitant]
     Dosage: UNK, UNKNOWN FREQ.
     Route: 065
     Dates: start: 20130820, end: 20130825
  74. HEXIZAC [Concomitant]
     Indication: PRODUCT USED FOR UNKNOWN INDICATION
     Dosage: UNK, UNKNOWN FREQ.
     Route: 065
     Dates: start: 20130817, end: 20130824
  75. HEXIZAC [Concomitant]
     Dosage: UNK, UNKNOWN FREQ.
     Route: 065
     Dates: start: 20130826
  76. PROCAINE HYDROCHLORIDE [Concomitant]
     Indication: PRODUCT USED FOR UNKNOWN INDICATION
     Dosage: UNK, UNKNOWN FREQ.
     Route: 065
     Dates: start: 20130813, end: 20130813

REACTIONS (3)
  - Thrombotic microangiopathy [Unknown]
  - Posterior reversible encephalopathy syndrome [Recovering/Resolving]
  - Drug-induced liver injury [Unknown]
